FAERS Safety Report 10119147 (Version 3)
Quarter: 2014Q2

REPORT INFORMATION
  Report Type: Report from Study
  Country: TH (occurrence: TH)
  Receive Date: 20140425
  Receipt Date: 20140611
  Transmission Date: 20141212
  Serious: Yes (Hospitalization, Other)
  Sender: FDA-Public Use
  Company Number: TH-TEVA-477890USA

PATIENT
  Age: 42 Year
  Sex: Male

DRUGS (17)
  1. BENDAMUSTINE [Suspect]
     Indication: CHRONIC LYMPHOCYTIC LEUKAEMIA
     Dosage: 157.5 MILLIGRAM DAILY; 1 OF 2 OF EACH CYCLE
     Route: 042
     Dates: start: 20140327
  2. BENDAMUSTINE [Suspect]
     Route: 042
     Dates: start: 20140328
  3. OBINUTUZUMAB [Suspect]
     Indication: CHRONIC LYMPHOCYTIC LEUKAEMIA
     Dosage: 1/2 SPLIT DOSE 8 AND 15 OF CYCLE 1 AND DAY 1 OF CYCLE 2-6
     Route: 042
     Dates: start: 20140327
  4. OBINUTUZUMAB [Suspect]
     Dosage: 1/2 SPLIT DOSE 8 AND 15 OF CYCLE 1 AND DAY 1 OF CYCLI 2-6
     Route: 042
     Dates: start: 20140328
  5. LAMIVUDINE [Concomitant]
     Indication: CHRONIC HEPATITIS
     Dosage: 450 MILLIGRAM DAILY;
     Route: 048
     Dates: start: 20140302
  6. SODIUM BICARBONATE [Concomitant]
     Indication: PROPHYLAXIS
     Dosage: 3 DOSAGE FORMS DAILY;
     Route: 048
     Dates: start: 20140325
  7. ALLOPURINOL [Concomitant]
     Indication: PROPHYLAXIS
     Dosage: 200 MILLIGRAM DAILY;
     Route: 048
  8. SIMVASTATIN [Concomitant]
     Indication: DYSLIPIDAEMIA
     Route: 048
     Dates: start: 20140329
  9. SIMVASTATIN [Concomitant]
     Route: 048
  10. GLUCOSE [Concomitant]
     Indication: PROPHYLAXIS
     Dosage: 5%
     Route: 042
     Dates: start: 20140325, end: 20140329
  11. CHLORPHENAMINE [Concomitant]
     Indication: PROPHYLAXIS
     Route: 042
     Dates: start: 20140327, end: 20140328
  12. CHLORPHENAMINE [Concomitant]
     Route: 042
     Dates: start: 20140330, end: 20140331
  13. DEXAMETHASON [Concomitant]
     Dosage: 5 MILLIGRAM DAILY;
     Route: 042
     Dates: start: 20140327
  14. DEXAMETHASON [Concomitant]
     Dosage: CONTINUOUS
     Route: 042
     Dates: start: 20140327
  15. PARACETAMOL [Concomitant]
     Dosage: SINGLE DOSE
     Route: 048
     Dates: start: 20140327
  16. PARACETAMOL [Concomitant]
     Dosage: CONTINUOUS
     Route: 048
     Dates: start: 20140327
  17. DIPHENHYDRAMINE HYDROCHLORIDE [Concomitant]
     Indication: PROPHYLAXIS
     Dosage: CONTINUOUS
     Route: 048
     Dates: start: 20140327

REACTIONS (2)
  - Ischaemic stroke [Recovered/Resolved with Sequelae]
  - Febrile neutropenia [Recovered/Resolved]
